FAERS Safety Report 12412258 (Version 10)
Quarter: 2018Q4

REPORT INFORMATION
  Report Type: Spontaneous
  Country: FR (occurrence: FR)
  Receive Date: 20160527
  Receipt Date: 20181204
  Transmission Date: 20190204
  Serious: Yes (Disabling, Congenital Anomaly, Other)
  Sender: FDA-Public Use
  Company Number: FR-ABBVIE-16P-056-1637070-00

PATIENT
  Sex: Male

DRUGS (1)
  1. DEPAKINE CHRONO [Suspect]
     Active Substance: VALPROATE SODIUM
     Indication: MATERNAL EXPOSURE TIMING UNSPECIFIED
     Route: 064

REACTIONS (33)
  - Hypotonia [Unknown]
  - Ill-defined disorder [Unknown]
  - Congenital cystic kidney disease [Unknown]
  - Hyperacusis [Unknown]
  - Developmental delay [Unknown]
  - Anxiety [Unknown]
  - Bronchial disorder [Unknown]
  - Gait disturbance [Recovered/Resolved]
  - Auditory disorder [Unknown]
  - Foetal anticonvulsant syndrome [Unknown]
  - Ear pain [Unknown]
  - Ear haemorrhage [Unknown]
  - Karyotype analysis abnormal [Unknown]
  - Autism spectrum disorder [Not Recovered/Not Resolved]
  - Knee deformity [Unknown]
  - Foot deformity [Unknown]
  - Disability [Not Recovered/Not Resolved]
  - Anger [Unknown]
  - Asthma [Unknown]
  - Foetal exposure during pregnancy [Unknown]
  - Mastication disorder [Not Recovered/Not Resolved]
  - Asphyxia [Not Recovered/Not Resolved]
  - Joint laxity [Unknown]
  - Speech disorder developmental [Unknown]
  - Intentional self-injury [Unknown]
  - Nervous system disorder [Not Recovered/Not Resolved]
  - Sleep disorder [Unknown]
  - Abnormal behaviour [Unknown]
  - Dyskinesia [Unknown]
  - Clinodactyly [Unknown]
  - Tremor [Unknown]
  - Psychomotor retardation [Unknown]
  - Dysmorphism [Unknown]

NARRATIVE: CASE EVENT DATE: 20140917
